FAERS Safety Report 24878629 (Version 1)
Quarter: 2025Q1

REPORT INFORMATION
  Report Type: Spontaneous
  Country: CN (occurrence: CN)
  Receive Date: 20250123
  Receipt Date: 20250123
  Transmission Date: 20250409
  Serious: Yes (Other)
  Sender: PFIZER
  Company Number: CN-PFIZER INC-PV202500009509

PATIENT
  Age: 92 Year
  Sex: Male
  Weight: 45 kg

DRUGS (1)
  1. VORICONAZOLE [Suspect]
     Active Substance: VORICONAZOLE
     Indication: Symptomatic treatment
     Dosage: 200 MG, 2X/DAY
     Route: 048
     Dates: start: 20241105, end: 20241108

REACTIONS (2)
  - Hallucination [Recovering/Resolving]
  - Mental disorder [Recovering/Resolving]

NARRATIVE: CASE EVENT DATE: 20241108
